FAERS Safety Report 4351043-8 (Version None)
Quarter: 2004Q2

REPORT INFORMATION
  Report Type: 
  Country: None (occurrence: None)
  Receive Date: 20040427
  Receipt Date: 20040414
  Transmission Date: 20050107
  Serious: No
  Sender: FDA-Public Use
  Company Number: 2004AP02252

PATIENT
  Age: 76 Year
  Sex: Male

DRUGS (3)
  1. XYLOCAINE [Suspect]
     Indication: LOCAL ANAESTHESIA
     Dosage: 25 MG DAILY
     Dates: start: 20021025, end: 20021025
  2. LAUGHING GAS [Concomitant]
  3. SEVOFLURANE [Concomitant]

REACTIONS (4)
  - ANAESTHETIC COMPLICATION CARDIAC [None]
  - ELECTROCARDIOGRAM ST SEGMENT DEPRESSION [None]
  - ELECTROCARDIOGRAM ST SEGMENT ELEVATION [None]
  - PROCEDURAL COMPLICATION [None]
